FAERS Safety Report 5672646-4 (Version None)
Quarter: 2008Q2

REPORT INFORMATION
  Report Type: 
  Country: None (occurrence: None)
  Receive Date: 20080219
  Receipt Date: 20080111
  Transmission Date: 20081010
  Serious: No
  Sender: FDA-Public Use
  Company Number: TPA2008A00065

PATIENT
  Age: 48 Year
  Sex: Female
  Weight: 79.3795 kg

DRUGS (10)
  1. ROZEREM [Suspect]
     Indication: INSOMNIA
     Dosage: 8 MG, 30 MIN BEFORE BEDTIME, PER ORAL
     Route: 048
     Dates: start: 20080108
  2. PREVACID [Concomitant]
  3. CALCIUM (CALCIUM) [Concomitant]
  4. CELEBREX [Concomitant]
  5. TOPROL-XL [Concomitant]
  6. PREMPRO [Concomitant]
  7. MULTIVITAMIN [Concomitant]
  8. LIQUID MOTRIN (IBUPROFEN) (SUSPENSION) [Concomitant]
  9. TYLENOL PM (DIPHENHYDRAMINE, PARACETAMOL) [Concomitant]
  10. UNKNOWN STOOL SOFTNER (DOCUSATE SODIUM) [Concomitant]

REACTIONS (1)
  - DRUG INEFFECTIVE [None]
